FAERS Safety Report 8248464-X (Version None)
Quarter: 2012Q1

REPORT INFORMATION
  Report Type: 
  Country: None (occurrence: None)
  Receive Date: 20120330
  Receipt Date: 20120320
  Transmission Date: 20120608
  Serious: Yes (Life-Threatening, Hospitalization)
  Sender: FDA-Public Use
  Company Number: RU-ROCHE-1053467

PATIENT
  Sex: Male
  Weight: 98 kg

DRUGS (3)
  1. TENECTEPLASE [Suspect]
     Indication: ACUTE MYOCARDIAL INFARCTION
  2. ENOXAPARIN [Concomitant]
  3. CLOPIDOGREL [Concomitant]

REACTIONS (1)
  - CORONARY ARTERY PERFORATION [None]
